FAERS Safety Report 7350752-6 (Version None)
Quarter: 2011Q1

REPORT INFORMATION
  Report Type: 
  Country: None (occurrence: None)
  Receive Date: 20110222
  Receipt Date: 20101102
  Transmission Date: 20110831
  Serious: No
  Sender: FDA-Public Use
  Company Number: 020578

PATIENT
  Age: 53 Year
  Sex: Female

DRUGS (1)
  1. LACOSAMIDE [Suspect]
     Dosage: (150 MG BID ORAL), (100 MG BID)
     Route: 048
     Dates: start: 20100101

REACTIONS (5)
  - WEIGHT INCREASED [None]
  - LOCAL SWELLING [None]
  - DYSPHONIA [None]
  - FLUID RETENTION [None]
  - NECK PAIN [None]
